FAERS Safety Report 21993458 (Version 2)
Quarter: 2023Q1

REPORT INFORMATION
  Report Type: Report from Study
  Country: US (occurrence: US)
  Receive Date: 20230215
  Receipt Date: 20230221
  Transmission Date: 20230418
  Serious: Yes (Hospitalization)
  Sender: FDA-Public Use
  Company Number: US-GBT-020098

PATIENT
  Age: 17 Year
  Sex: Female

DRUGS (9)
  1. OXBRYTA [Suspect]
     Active Substance: VOXELOTOR
     Indication: Anaemia
     Dates: start: 20210820
  2. cholecalciferol, vitamin D3 50 mcg (2,000 unit) tablet [Concomitant]
     Indication: Vitamin D deficiency
     Dosage: 1 TABLET
     Route: 048
     Dates: start: 20191219
  3. morphine (MS CONTIN) 15 mg 12 extended release tablet [Concomitant]
     Indication: Sickle cell disease
     Dosage: AS NECESSARY
     Route: 048
     Dates: start: 20190311
  4. hydrocodone-acetaminophen (locrcet), 5-325 mg tablet [Concomitant]
     Indication: Sickle cell disease
     Dosage: 1 TABLET AS NECESSARY
     Route: 048
     Dates: start: 20180816
  5. oxycodone IR (roxicodone) 10 mg immediate release tablet [Concomitant]
     Indication: Sickle cell disease
     Dosage: AS NECESSARY
     Dates: start: 20201117
  6. hydroxyurea (hydrea) 500 mg capsule [Concomitant]
     Indication: Sickle cell disease
     Dosage: 1000 M-F MG, 1500 SS MG
     Route: 048
  7. cyclobenzaprine (flexeril) 5 mg tablet [Concomitant]
     Indication: Sickle cell disease
     Dosage: TIME INTERVAL: 0.33333333 DAYS: AS NECESSARY
     Route: 048
     Dates: start: 20200809
  8. ibuprofen (motrin) 400 mg tablet [Concomitant]
     Indication: Sickle cell disease
     Dosage: AS NECESSARY
     Route: 048
     Dates: start: 20210520
  9. folic acid (folvite) 1 mg tablet [Concomitant]
     Indication: Sickle cell disease
     Route: 048
     Dates: start: 20120414

REACTIONS (1)
  - Sickle cell anaemia with crisis [Recovered/Resolved]

NARRATIVE: CASE EVENT DATE: 20230206
